FAERS Safety Report 5675933-9 (Version None)
Quarter: 2008Q1

REPORT INFORMATION
  Report Type: 
  Country: None (occurrence: None)
  Receive Date: 20080321
  Receipt Date: 20080318
  Transmission Date: 20080703
  Serious: Yes (Life-Threatening, Hospitalization)
  Sender: FDA-Public Use
  Company Number: B0513353A

PATIENT
  Age: 7 Year
  Sex: Male

DRUGS (9)
  1. ABACAVIR [Suspect]
     Indication: HIV INFECTION
     Dates: start: 20080227
  2. ZIDOVUDINE [Suspect]
     Indication: HIV INFECTION
     Route: 048
     Dates: start: 20080227, end: 20080314
  3. LAMIVUDINE [Suspect]
     Indication: HIV INFECTION
     Route: 048
     Dates: start: 20080227
  4. EFAVIRENZ [Suspect]
     Indication: HIV INFECTION
     Dates: start: 20080227
  5. COTRIMOXAZOLE [Suspect]
     Indication: PROPHYLAXIS
     Dates: start: 20070801, end: 20080311
  6. NEVIRAPINE [Suspect]
     Indication: HIV INFECTION
     Dates: start: 20080227
  7. ETHAMBUTOL HYDROCHLORIDE [Concomitant]
     Indication: DRUG USE FOR UNKNOWN INDICATION
  8. ISONIAZID [Concomitant]
     Indication: DRUG USE FOR UNKNOWN INDICATION
  9. VITAMIN CAP [Concomitant]
     Indication: DRUG USE FOR UNKNOWN INDICATION

REACTIONS (19)
  - ABDOMINAL PAIN [None]
  - ABDOMINAL TENDERNESS [None]
  - ANAEMIA [None]
  - BREATH SOUNDS ABNORMAL [None]
  - COUGH [None]
  - DIARRHOEA [None]
  - DYSPNOEA [None]
  - FATIGUE [None]
  - HYPERSENSITIVITY [None]
  - JAUNDICE [None]
  - MALAISE [None]
  - MYALGIA [None]
  - NAUSEA [None]
  - NEUTROPENIA [None]
  - PNEUMONIA [None]
  - PYREXIA [None]
  - SEPSIS [None]
  - ULTRASOUND ABDOMEN ABNORMAL [None]
  - VOMITING [None]
